FAERS Safety Report 25877671 (Version 1)
Quarter: 2025Q4

REPORT INFORMATION
  Report Type: Report from Study
  Country: US (occurrence: US)
  Receive Date: 20251003
  Receipt Date: 20251003
  Transmission Date: 20260117
  Serious: Yes (Other)
  Sender: ALEXION PHARMACEUTICALS
  Company Number: US-AstraZeneca-CH-00952256A

PATIENT
  Age: 39 Year
  Sex: Female
  Weight: 72.562 kg

DRUGS (17)
  1. TEZEPELUMAB [Suspect]
     Active Substance: TEZEPELUMAB
     Indication: Asthma
     Route: 065
  2. TEZEPELUMAB [Suspect]
     Active Substance: TEZEPELUMAB
  3. TEZEPELUMAB [Suspect]
     Active Substance: TEZEPELUMAB
  4. TEZEPELUMAB [Suspect]
     Active Substance: TEZEPELUMAB
  5. BREZTRI [Suspect]
     Active Substance: BUDESONIDE\FORMOTEROL\GLYCOPYRROLATE
     Dosage: 2 PUFFS INTO THE LUNGS TWICE A DAY FOR 90 DAYS
     Route: 065
  6. AIRSUPRA [Suspect]
     Active Substance: ALBUTEROL SULFATE\BUDESONIDE
     Dosage: 2 PUFFS AS NEEDED INHALATION SIX TIMES A DAY
     Route: 065
  7. FASENRA [Suspect]
     Active Substance: BENRALIZUMAB
     Route: 065
  8. CODEINE\PROMETHAZINE [Suspect]
     Active Substance: CODEINE\PROMETHAZINE
     Route: 065
  9. IPRATROPIUM [Concomitant]
     Active Substance: IPRATROPIUM
     Route: 065
  10. ALBUTEROL (PT007) [Concomitant]
     Route: 065
  11. CLARITHROMYCIN [Concomitant]
     Active Substance: CLARITHROMYCIN
     Dosage: 500 MG TABLET 1 TABLET ORALLY EVERY 12 HRS
     Route: 065
  12. PREDNISONE [Concomitant]
     Active Substance: PREDNISONE
     Route: 065
  13. FOCALIN [Concomitant]
     Active Substance: DEXMETHYLPHENIDATE HYDROCHLORIDE
     Dosage: 20 MG CAPSULE EXTENDED RELEASE 24 HOUR 1 CAPSULE IN THE NORNING ORALLY ONCE A DAY
     Route: 065
  14. MONTELUKAST SODIUM [Concomitant]
     Active Substance: MONTELUKAST SODIUM
     Dosage: 10 MG TABLET 1 TABLET ORALLY ONCE A DAY
     Route: 065
  15. CELEBREX [Concomitant]
     Active Substance: CELECOXIB
     Dosage: 200 MG CAPSULE 1 CAPSULE WITH FOOD ORALLY ONCE A DAY
     Route: 065
  16. PLAQUENIL [Concomitant]
     Active Substance: HYDROXYCHLOROQUINE SULFATE
     Dosage: 200 MG TABLET AS DIRECTED ORALLY
     Route: 065
  17. NURTEC ODT [Concomitant]
     Active Substance: RIMEGEPANT SULFATE
     Dosage: 75 MG TABLET DISINTEGRATING ORAL
     Route: 065

REACTIONS (13)
  - Pneumonia [Unknown]
  - Asthma [Unknown]
  - Syncope [Unknown]
  - Cough [Unknown]
  - Bronchitis [Unknown]
  - Granuloma [Unknown]
  - Chest pain [Unknown]
  - Tachycardia [Unknown]
  - Urinary tract infection [Unknown]
  - Somnolence [Unknown]
  - Nodule [Unknown]
  - Snoring [Unknown]
  - Nasopharyngitis [Unknown]

NARRATIVE: CASE EVENT DATE: 20241216
